FAERS Safety Report 10402103 (Version 1)
Quarter: 2014Q3

REPORT INFORMATION
  Report Type: Spontaneous
  Country: US (occurrence: US)
  Receive Date: 20140822
  Receipt Date: 20140822
  Transmission Date: 20150326
  Serious: Yes (Hospitalization)
  Sender: FDA-Public Use
  Company Number: US-BAYER-2014-121931

PATIENT
  Age: 37 Year
  Sex: Female

DRUGS (5)
  1. ACETAMINOPHEN. [Suspect]
     Active Substance: ACETAMINOPHEN
     Route: 048
  2. IBUPROFEN. [Suspect]
     Active Substance: IBUPROFEN
     Dosage: UNK UNK, ONCE
     Route: 048
  3. ACETYLSALICYLIC ACID (} 100 MG) [Suspect]
     Active Substance: ASPIRIN
     Dosage: UNK UNK, ONCE
     Route: 048
  4. CAFFEINE. [Suspect]
     Active Substance: CAFFEINE
     Dosage: UNK UNK, ONCE
     Route: 048
  5. GUAIFENESIN. [Suspect]
     Active Substance: GUAIFENESIN
     Dosage: UNK UNK, ONCE
     Route: 048

REACTIONS (5)
  - Coma [Recovered/Resolved]
  - Vomiting [None]
  - Depressed level of consciousness [Recovered/Resolved]
  - Intentional overdose [None]
  - Metabolic acidosis [Recovered/Resolved]
